FAERS Safety Report 5774407-4 (Version None)
Quarter: 2008Q2

REPORT INFORMATION
  Report Type: 
  Country: None (occurrence: None)
  Receive Date: 20080616
  Receipt Date: 20080606
  Transmission Date: 20081010
  Serious: Yes (Congenital Anomaly)
  Sender: FDA-Public Use
  Company Number: FR-PFIZER INC-2008026195

PATIENT
  Sex: Female
  Weight: 1.675 kg

DRUGS (4)
  1. AMLOR [Suspect]
     Route: 064
     Dates: start: 20070220, end: 20080315
  2. KARDEGIC [Suspect]
     Route: 064
     Dates: start: 20071015, end: 20080315
  3. TRANDATE [Suspect]
     Route: 064
     Dates: start: 20071008, end: 20071010
  4. ALDOMET [Suspect]
     Route: 064
     Dates: start: 20071010, end: 20080218

REACTIONS (3)
  - CONGENITAL SKIN DISORDER [None]
  - DRUG EXPOSURE DURING PREGNANCY [None]
  - MELANOCYTIC NAEVUS [None]
